FAERS Safety Report 4352976-9 (Version None)
Quarter: 2004Q2

REPORT INFORMATION
  Report Type: 
  Country: None (occurrence: None)
  Receive Date: 20040429
  Receipt Date: 20040416
  Transmission Date: 20050107
  Serious: Yes (Hospitalization, Other)
  Sender: FDA-Public Use
  Company Number: 2004007201

PATIENT
  Age: 58 Year
  Sex: Male

DRUGS (8)
  1. DOFETILIDE (DOFETILIDE) [Suspect]
     Indication: ATRIAL FIBRILLATION
     Dosage: 1000 MCG (BID)
     Dates: start: 20040101
  2. LISINOPRIL [Concomitant]
  3. DIGOXIN [Concomitant]
  4. CARVEDILOL [Concomitant]
  5. MAGNESIUM ASPARTATE (MAGNESIUM ASPARTATE) [Concomitant]
  6. SPIRONOLACTONE [Concomitant]
  7. FUROSEMIDE [Concomitant]
  8. WARFARIN SODIUM [Concomitant]

REACTIONS (13)
  - ATRIAL FIBRILLATION [None]
  - BRADYCARDIA [None]
  - CARDIAC FAILURE [None]
  - CONDUCTION DISORDER [None]
  - EJECTION FRACTION DECREASED [None]
  - ELECTROCARDIOGRAM QT CORRECTED INTERVAL PROLONGED [None]
  - HEART RATE IRREGULAR [None]
  - HYPOTENSION [None]
  - PLEURITIC PAIN [None]
  - PYREXIA [None]
  - SUPRAVENTRICULAR EXTRASYSTOLES [None]
  - VENTRICULAR TACHYCARDIA [None]
  - VIRAL UPPER RESPIRATORY TRACT INFECTION [None]
